FAERS Safety Report 8838667 (Version 2)
Quarter: 2012Q4

REPORT INFORMATION
  Report Type: 
  Country: US (occurrence: US)
  Receive Date: 20121012
  Receipt Date: 20121018
  Transmission Date: 20130627
  Serious: No
  Sender: FDA-Public Use
  Company Number: US-ASTRAZENECA-2010SE31796

PATIENT
  Age: 59 Year
  Sex: Male

DRUGS (8)
  1. OMEPRAZOLE [Suspect]
     Route: 048
  2. PRILOSEC OTC [Suspect]
     Route: 048
  3. CADUET [Concomitant]
  4. CELEBREX [Concomitant]
  5. LOTENSIN HCT [Concomitant]
  6. TIMOPTIC [Concomitant]
  7. XALATAN [Concomitant]
  8. NEXIUM [Concomitant]

REACTIONS (5)
  - Drug intolerance [Unknown]
  - Glaucoma [Unknown]
  - Constipation [Unknown]
  - Vomiting [Unknown]
  - Drug ineffective [Unknown]
